FAERS Safety Report 5635737-X (Version None)
Quarter: 2008Q1

REPORT INFORMATION
  Report Type: 
  Country: None (occurrence: None)
  Receive Date: 20080223
  Receipt Date: 20080213
  Transmission Date: 20080703
  Serious: Yes (Other)
  Sender: FDA-Public Use
  Company Number: US-ELI_LILLY_AND_COMPANY-US200802002877

PATIENT
  Sex: Female

DRUGS (3)
  1. HUMULIN N [Suspect]
     Dosage: 6 U, EACH EVENING
  2. HUMULIN 70/30 [Suspect]
     Dosage: UNK, 3/D
  3. GLUCOPHAGE [Concomitant]
     Indication: DIABETES MELLITUS

REACTIONS (5)
  - BLOOD PRESSURE INCREASED [None]
  - BREAST MASS [None]
  - FLUID RETENTION [None]
  - INJECTION SITE INFLAMMATION [None]
  - INJECTION SITE PRURITUS [None]
